FAERS Safety Report 21952872 (Version 1)
Quarter: 2023Q1

REPORT INFORMATION
  Report Type: Spontaneous
  Country: US (occurrence: US)
  Receive Date: 20230204
  Receipt Date: 20230204
  Transmission Date: 20230417
  Serious: Yes (Death, Hospitalization)
  Sender: FDA-Public Use
  Company Number: US-JNJFOC-20230207562

PATIENT
  Age: 48 Year
  Sex: Female

DRUGS (6)
  1. ULTRAM [Suspect]
     Active Substance: TRAMADOL HYDROCHLORIDE
     Indication: Suicide attempt
     Route: 065
  2. DIPHENHYDRAMINE HYDROCHLORIDE [Suspect]
     Active Substance: DIPHENHYDRAMINE HYDROCHLORIDE
     Indication: Suicide attempt
     Route: 065
  3. AMLODIPINE [Suspect]
     Active Substance: AMLODIPINE BESYLATE
     Indication: Suicide attempt
     Route: 065
  4. FENTANYL [Suspect]
     Active Substance: FENTANYL
     Indication: Suicide attempt
     Route: 065
  5. GABAPENTIN [Suspect]
     Active Substance: GABAPENTIN
     Indication: Suicide attempt
     Route: 065
  6. COCAINE [Suspect]
     Active Substance: COCAINE
     Indication: Suicide attempt
     Route: 065

REACTIONS (1)
  - Toxicity to various agents [Fatal]
